FAERS Safety Report 4923413-8 (Version None)
Quarter: 2006Q1

REPORT INFORMATION
  Report Type: 
  Country: None (occurrence: None)
  Receive Date: 20060227
  Receipt Date: 20060110
  Transmission Date: 20060701
  Serious: Yes (Hospitalization)
  Sender: FDA-Public Use
  Company Number: US-JNJFOC-20060103994

PATIENT
  Sex: Female
  Weight: 88 kg

DRUGS (4)
  1. ORTHO EVRA [Suspect]
     Indication: DRUG USE FOR UNKNOWN INDICATION
     Dates: start: 20040201
  2. PREVACID [Concomitant]
  3. ZYRTEC [Concomitant]
     Route: 048
  4. ADVIL [Concomitant]
     Route: 048

REACTIONS (2)
  - CEREBROVASCULAR ACCIDENT [None]
  - THROMBOTIC THROMBOCYTOPENIC PURPURA [None]
